FAERS Safety Report 5614525-4 (Version None)
Quarter: 2008Q1

REPORT INFORMATION
  Report Type: 
  Country: None (occurrence: None)
  Receive Date: 20080205
  Receipt Date: 20080122
  Transmission Date: 20080703
  Serious: No
  Sender: FDA-Public Use
  Company Number: US-BOEHRINGER INGELHEIM GMBH, GERMANY-2008-BP-01081BP

PATIENT
  Sex: Male

DRUGS (10)
  1. ZANTAC 150 [Suspect]
     Indication: PROPHYLAXIS
     Route: 048
     Dates: start: 20070101
  2. ASPIRIN [Concomitant]
  3. GLIPIZIDE [Concomitant]
  4. METFORMIN HCL [Concomitant]
  5. LASIX [Concomitant]
  6. POTASSIUM CHLORIDE [Concomitant]
  7. LISINOPRIL [Concomitant]
  8. RAZADYNE [Concomitant]
     Indication: MEMORY IMPAIRMENT
  9. COREG [Concomitant]
  10. LIPITOR [Concomitant]

REACTIONS (2)
  - PRURITUS [None]
  - RASH GENERALISED [None]
